FAERS Safety Report 19180992 (Version 2)
Quarter: 2022Q3

REPORT INFORMATION
  Report Type: Other
  Country: US (occurrence: None)
  Receive Date: 20210426
  Receipt Date: 20220728
  Transmission Date: 20221027
  Serious: Yes (Other)
  Sender: FDA-Public Use
  Company Number: US-ROCHE-2817573

PATIENT
  Sex: Male

DRUGS (3)
  1. TOCILIZUMAB [Suspect]
     Active Substance: TOCILIZUMAB
     Indication: COVID-19
     Route: 042
  2. HYDROXYCHLOROQUINE [Concomitant]
     Active Substance: HYDROXYCHLOROQUINE
  3. AZITHROMYCIN [Concomitant]
     Active Substance: AZITHROMYCIN

REACTIONS (5)
  - Pseudomonal sepsis [Unknown]
  - Urinary tract infection enterococcal [Unknown]
  - Respiratory tract infection bacterial [Unknown]
  - Enterococcal sepsis [Unknown]
  - Off label use [Unknown]

NARRATIVE: CASE EVENT DATE: 20200423
